FAERS Safety Report 6516100-6 (Version None)
Quarter: 2009Q4

REPORT INFORMATION
  Report Type: 
  Country: None (occurrence: None)
  Receive Date: 20091223
  Receipt Date: 20091214
  Transmission Date: 20100525
  Serious: Yes (Hospitalization)
  Sender: FDA-Public Use
  Company Number: JP-ASTRAZENECA-2009SE28656

PATIENT
  Age: 86 Year
  Sex: Male

DRUGS (2)
  1. MEROPEN [Suspect]
     Indication: ESCHERICHIA BACTERAEMIA
     Route: 042
     Dates: end: 20091027
  2. CIPROXAN [Concomitant]
     Indication: PNEUMONIA PRIMARY ATYPICAL

REACTIONS (1)
  - HYPERBILIRUBINAEMIA [None]
